FAERS Safety Report 22726919 (Version 2)
Quarter: 2024Q1

REPORT INFORMATION
  Report Type: Spontaneous
  Country: US (occurrence: US)
  Receive Date: 20230720
  Receipt Date: 20240317
  Transmission Date: 20240409
  Serious: Yes (Life-Threatening, Hospitalization, Other)
  Sender: FDA-Public Use
  Company Number: US-MLMSERVICE-20230703-4388383-1

PATIENT
  Age: 67 Year
  Sex: Female

DRUGS (3)
  1. PREDNISONE [Suspect]
     Active Substance: PREDNISONE
     Indication: Mesenteric panniculitis
     Dosage: 30 MILLIGRAM (LONG-TERM)
     Route: 065
  2. CYTOXAN [Suspect]
     Active Substance: CYCLOPHOSPHAMIDE
     Indication: Mesenteric panniculitis
     Dosage: UNK
     Route: 065
  3. IMURAN [Suspect]
     Active Substance: AZATHIOPRINE
     Indication: Mesenteric panniculitis
     Dosage: UNK
     Route: 065

REACTIONS (6)
  - Adenovirus infection [Unknown]
  - Pneumocystis jirovecii pneumonia [Unknown]
  - Acute respiratory failure [Unknown]
  - Troponin increased [Unknown]
  - Pulmonary fibrosis [Unknown]
  - Hyponatraemia [Unknown]
